FAERS Safety Report 13464510 (Version 1)
Quarter: 2017Q2

REPORT INFORMATION
  Report Type: Spontaneous
  Country: US (occurrence: US)
  Receive Date: 20170420
  Receipt Date: 20170420
  Transmission Date: 20170830
  Serious: Yes (Other)
  Sender: FDA-Public Use
  Company Number: US-ROCHE-687524

PATIENT
  Age: 21 Year
  Sex: Female
  Weight: 52.2 kg

DRUGS (4)
  1. ACCUTANE [Suspect]
     Active Substance: ISOTRETINOIN
     Route: 048
  2. ACCUTANE [Suspect]
     Active Substance: ISOTRETINOIN
     Route: 048
     Dates: start: 20070315, end: 20070601
  3. ACCUTANE [Suspect]
     Active Substance: ISOTRETINOIN
     Indication: ACNE CYSTIC
     Route: 048
  4. ALLEGRA [Concomitant]
     Active Substance: FEXOFENADINE HYDROCHLORIDE
     Indication: HYPERSENSITIVITY
     Route: 065

REACTIONS (11)
  - Colitis ulcerative [Unknown]
  - Lip dry [Unknown]
  - Depression [Unknown]
  - Rash [Unknown]
  - Cheilitis [Unknown]
  - Acne [Unknown]
  - Blood cholesterol increased [Unknown]
  - Epistaxis [Unknown]
  - Inflammatory bowel disease [Unknown]
  - Blood triglycerides increased [Recovered/Resolved]
  - Chest pain [Unknown]

NARRATIVE: CASE EVENT DATE: 20061117
